FAERS Safety Report 4303812-8 (Version None)
Quarter: 2004Q1

REPORT INFORMATION
  Report Type: 
  Country: None (occurrence: None)
  Receive Date: 20040224
  Receipt Date: 20040224
  Transmission Date: 20041129
  Serious: Yes (Hospitalization)
  Sender: FDA-Public Use
  Company Number: None

PATIENT
  Age: 71 Year
  Sex: Female
  Weight: 69.8539 kg

DRUGS (1)
  1. PROPOFOL [Suspect]
     Indication: SEDATIVE THERAPY
     Dosage: INDUCTION ANESTHESIA
     Dates: start: 20040202

REACTIONS (1)
  - PANCREATITIS [None]
